FAERS Safety Report 8305665-X (Version None)
Quarter: 2012Q2

REPORT INFORMATION
  Report Type: 
  Country: None (occurrence: None)
  Receive Date: 20120423
  Receipt Date: 20120417
  Transmission Date: 20120825
  Serious: Yes (Other)
  Sender: FDA-Public Use
  Company Number: BE-PFIZER INC-2012094605

PATIENT
  Age: 63 Year
  Sex: Male
  Weight: 75 kg

DRUGS (13)
  1. DIFLUCAN [Suspect]
     Indication: ANTIFUNGAL PROPHYLAXIS
     Dosage: 400 MG DAILY
     Route: 042
     Dates: start: 20110609, end: 20110627
  2. ACETYLCYSTEINE [Concomitant]
     Indication: BRONCHIAL SECRETION RETENTION
     Dosage: UNK
     Dates: start: 20110607
  3. MORPHINE [Concomitant]
     Indication: PAIN PROPHYLAXIS
     Dosage: UNK
     Dates: start: 20110607, end: 20110610
  4. GLUCOSE [Concomitant]
     Dosage: 5%
     Dates: start: 20110607, end: 20110627
  5. SODIUM CHLORIDE [Concomitant]
     Indication: FLUID IMBALANCE
     Dosage: 3 G, UNK
     Dates: start: 20110607, end: 20110627
  6. SODIUM CHLORIDE [Concomitant]
     Indication: VITAMIN B1 DECREASED
  7. VITAMIN B1 TAB [Concomitant]
     Indication: VITAMIN B1 DEFICIENCY
     Dosage: 100 MG, UNK
     Dates: start: 20110607, end: 20110627
  8. INSULIN PORCINE [Concomitant]
     Indication: HYPERGLYCAEMIA
     Dosage: UNK
     Dates: start: 20110607, end: 20110610
  9. CLOPIDOGREL [Concomitant]
     Indication: THROMBOSIS
     Dosage: UNK
     Dates: start: 20100830, end: 20110606
  10. ACETYLSALICYLIC ACID [Concomitant]
     Indication: STENT PLACEMENT
     Dosage: UNK
     Dates: start: 20100830
  11. DUOVENT [Concomitant]
     Indication: PROPHYLAXIS
     Dosage: UNK
     Dates: start: 20110607, end: 20110617
  12. ISONIAZID [Concomitant]
     Indication: ANTIBIOTIC PROPHYLAXIS
     Dosage: UNK
     Dates: start: 20101229, end: 20110908
  13. CALCIUM CHLORIDE ANHYDROUS AND CALCIUM CHLORIDE DIHYDRATE [Concomitant]
     Indication: BLOOD CALCIUM DECREASED
     Dosage: UNK
     Dates: start: 20110614, end: 20110614

REACTIONS (2)
  - RENAL FAILURE [None]
  - HYPERKALAEMIA [None]
